FAERS Safety Report 4518740-2 (Version None)
Quarter: 2004Q4

REPORT INFORMATION
  Report Type: 
  Country: None (occurrence: None)
  Receive Date: 20041201
  Receipt Date: 20041115
  Transmission Date: 20050328
  Serious: Yes (Death, Hospitalization)
  Sender: FDA-Public Use
  Company Number: L04-USA-07403-01

PATIENT
  Age: 44 Year
  Sex: Male

DRUGS (11)
  1. CITALOPRAM [Suspect]
  2. FENTANYL [Suspect]
  3. CLONAZEPAM [Suspect]
  4. RISPERIDONE [Suspect]
  5. ZIDOVUDINE W/LAMIVUDINE [Suspect]
  6. PROGESTIN INJ [Suspect]
  7. ANTICONVULSANT NOS [Suspect]
  8. ALBUTEROL [Suspect]
  9. ANGIOTENSIN RECEPTOR ANTAGONIST NOS [Suspect]
  10. ZOLPIDEM [Suspect]
  11. VALDECOXIB [Suspect]

REACTIONS (8)
  - BLOOD CREATINE PHOSPHOKINASE INCREASED [None]
  - BLOOD CREATININE INCREASED [None]
  - COMA [None]
  - HYPOGLYCAEMIA [None]
  - KUSSMAUL RESPIRATION [None]
  - MULTIPLE DRUG OVERDOSE [None]
  - RESPIRATORY DEPRESSION [None]
  - UNRESPONSIVE TO PAIN STIMULI [None]
